FAERS Safety Report 14538847 (Version 1)
Quarter: 2018Q1

REPORT INFORMATION
  Report Type: Spontaneous
  Country: US (occurrence: US)
  Receive Date: 20180216
  Receipt Date: 20180216
  Transmission Date: 20180509
  Serious: No
  Sender: FDA-Public Use
  Company Number: US-PFIZER INC-2018061950

PATIENT
  Age: 47 Year
  Sex: Female

DRUGS (1)
  1. MENEST [Suspect]
     Active Substance: ESTROGENS, ESTERIFIED
     Indication: HORMONE THERAPY
     Dosage: 1 DF, DAILY (1 PILL A DAY)
     Route: 048

REACTIONS (2)
  - Mood swings [Unknown]
  - Night sweats [Unknown]
